FAERS Safety Report 8020934-9 (Version None)
Quarter: 2011Q4

REPORT INFORMATION
  Report Type: 
  Country: None (occurrence: None)
  Receive Date: 20111228
  Receipt Date: 20111207
  Transmission Date: 20120403
  Serious: Yes (Hospitalization)
  Sender: FDA-Public Use
  Company Number: 2011PL000213

PATIENT
  Age: 39 Year
  Sex: Female

DRUGS (1)
  1. PROLEUKIN [Suspect]
     Indication: METASTATIC MALIGNANT MELANOMA
     Dosage: 6000000 IU; SC
     Route: 058
     Dates: start: 20111010

REACTIONS (4)
  - ROSEOLA [None]
  - HERPES VIRUS INFECTION [None]
  - IMMUNE SYSTEM DISORDER [None]
  - INJECTION SITE INFLAMMATION [None]
